FAERS Safety Report 11193080 (Version 1)
Quarter: 2015Q2

REPORT INFORMATION
  Report Type: Spontaneous
  Country: US (occurrence: US)
  Receive Date: 20150616
  Receipt Date: 20150616
  Transmission Date: 20150821
  Serious: Yes (Hospitalization, Other)
  Sender: FDA-Public Use
  Company Number: US-TAKEDA-2014MPI001665

PATIENT
  Age: 42 Year
  Sex: Female

DRUGS (5)
  1. DEXAMETHASONE. [Suspect]
     Active Substance: DEXAMETHASONE
     Indication: PLASMA CELL MYELOMA
     Dosage: ONE CYCLE CYBORD THERAPY
     Route: 048
     Dates: start: 20140418
  2. DEXAMETHASONE. [Suspect]
     Active Substance: DEXAMETHASONE
     Dosage: VELCADE PLUS DEXAMETHASONE THERAPY
     Route: 048
  3. CYCLOPHOSPHAMIDE. [Suspect]
     Active Substance: CYCLOPHOSPHAMIDE
     Dosage: ONE CYCLE CYBORD THERAPY
     Route: 048
     Dates: start: 20140418
  4. VELCADE [Suspect]
     Active Substance: BORTEZOMIB
     Indication: PLASMA CELL MYELOMA
     Dosage: ONE CYCLE CYBORD THERAPY
     Route: 042
     Dates: start: 20140418
  5. VELCADE [Suspect]
     Active Substance: BORTEZOMIB
     Dosage: VELCADE PLUS DEXAMETHASONE THERAPY
     Route: 042

REACTIONS (2)
  - Cytopenia [Unknown]
  - Urinary retention [Unknown]
